FAERS Safety Report 8840268 (Version 4)
Quarter: 2025Q2

REPORT INFORMATION
  Report Type: Spontaneous
  Country: US (occurrence: US)
  Receive Date: 20121015
  Receipt Date: 20250501
  Transmission Date: 20250717
  Serious: Yes (Hospitalization, Congenital Anomaly, Other)
  Sender: ROCHE
  Company Number: US-ROCHE-1145168

PATIENT
  Age: 67 Year
  Sex: Female

DRUGS (2)
  1. BONIVA [Suspect]
     Active Substance: IBANDRONATE SODIUM
     Indication: Osteoporosis
     Route: 048
     Dates: start: 2006, end: 2010
  2. FOSAMAX [Suspect]
     Active Substance: ALENDRONATE SODIUM
     Indication: Osteoporosis
     Route: 065
     Dates: start: 2006, end: 2010

REACTIONS (6)
  - Femoral neck fracture [Unknown]
  - Hip fracture [Unknown]
  - Cholelithiasis [Unknown]
  - Anaemia [Unknown]
  - Syncope [Unknown]
  - Emotional distress [Unknown]

NARRATIVE: CASE EVENT DATE: 20100920
